FAERS Safety Report 4511840-2 (Version None)
Quarter: 2004Q4

REPORT INFORMATION
  Report Type: 
  Country: None (occurrence: None)
  Receive Date: 20041123
  Receipt Date: 20041109
  Transmission Date: 20050328
  Serious: Yes (Hospitalization)
  Sender: FDA-Public Use
  Company Number: 02100-USA-04-0386

PATIENT

DRUGS (1)
  1. PLETAL [Suspect]
     Dosage: DF ORAL
     Route: 048

REACTIONS (1)
  - POST PROCEDURAL HAEMORRHAGE [None]
